FAERS Safety Report 8248073-2 (Version None)
Quarter: 2012Q1

REPORT INFORMATION
  Report Type: 
  Country: None (occurrence: None)
  Receive Date: 20120330
  Receipt Date: 20120327
  Transmission Date: 20120608
  Serious: Yes (Hospitalization)
  Sender: FDA-Public Use
  Company Number: RO-JNJFOC-20110200184

PATIENT
  Sex: Female
  Weight: 75 kg

DRUGS (5)
  1. GOLIMUMAB [Suspect]
     Route: 058
     Dates: start: 20101007
  2. METHOTREXATE [Concomitant]
     Indication: RHEUMATOID ARTHRITIS
     Route: 030
     Dates: start: 20100401
  3. FOLIC ACID [Concomitant]
     Indication: PROPHYLAXIS
     Route: 048
     Dates: start: 20100401
  4. GOLIMUMAB [Suspect]
     Indication: RHEUMATOID ARTHRITIS
     Dosage: 4 DOSES IN TOTAL
     Route: 058
     Dates: start: 20110207
  5. GOLIMUMAB [Suspect]
     Route: 058
     Dates: start: 20110101

REACTIONS (1)
  - TUBERCULOSIS [None]
